FAERS Safety Report 22035457 (Version 1)
Quarter: 2023Q1

REPORT INFORMATION
  Report Type: Spontaneous
  Country: FR (occurrence: FR)
  Receive Date: 20230224
  Receipt Date: 20230224
  Transmission Date: 20230417
  Serious: Yes (Other)
  Sender: FDA-Public Use
  Company Number: FR-ANIPHARMA-2023-FR-000036

PATIENT
  Sex: 0

DRUGS (1)
  1. ARIMIDEX [Suspect]
     Active Substance: ANASTROZOLE
     Indication: Breast cancer
     Route: 048

REACTIONS (3)
  - Malignant neoplasm progression [Unknown]
  - Metastases to bone [Unknown]
  - Carbohydrate antigen 15-3 increased [Unknown]
